FAERS Safety Report 7364093-4 (Version None)
Quarter: 2011Q1

REPORT INFORMATION
  Report Type: 
  Country: None (occurrence: None)
  Receive Date: 20110321
  Receipt Date: 20110310
  Transmission Date: 20110831
  Serious: Yes (Hospitalization)
  Sender: FDA-Public Use
  Company Number: PHHO2011US04073

PATIENT
  Age: 44 Year
  Sex: Female

DRUGS (3)
  1. ZOLEDRONIC ACID [Suspect]
     Dosage: UNK
  2. TRIPTORELIN [Concomitant]
     Indication: BREAST CANCER
     Dosage: 3.75 MG, UNK
     Route: 030
     Dates: start: 20070725
  3. EXEMESTANE [Suspect]
     Indication: BREAST CANCER
     Dosage: 25 MG, UNK
     Route: 048
     Dates: start: 20070730, end: 20110129

REACTIONS (3)
  - ABDOMINAL PAIN [None]
  - PULMONARY EMBOLISM [None]
  - CHEST PAIN [None]
